FAERS Safety Report 5353321-2 (Version None)
Quarter: 2007Q2

REPORT INFORMATION
  Report Type: 
  Country: None (occurrence: None)
  Receive Date: 20070518
  Receipt Date: 20070221
  Transmission Date: 20071010
  Serious: No
  Sender: FDA-Public Use
  Company Number: TPA2007A00446

PATIENT
  Sex: Female

DRUGS (2)
  1. ROZEREM [Suspect]
     Dosage: SEE IMAGE
     Dates: start: 20061101, end: 20061101
  2. ROZEREM [Suspect]
     Dosage: SEE IMAGE
     Dates: start: 20070220, end: 20070221

REACTIONS (2)
  - NIGHT SWEATS [None]
  - RESTLESSNESS [None]
